FAERS Safety Report 20955729 (Version 3)
Quarter: 2022Q3

REPORT INFORMATION
  Report Type: Spontaneous
  Country: US (occurrence: None)
  Receive Date: 20220614
  Receipt Date: 20220728
  Transmission Date: 20221027
  Serious: No
  Sender: FDA-Public Use
  Company Number: 2022A202266

PATIENT
  Sex: Female

DRUGS (2)
  1. SYMBICORT [Suspect]
     Active Substance: BUDESONIDE\FORMOTEROL FUMARATE DIHYDRATE
     Indication: Asthma
     Dosage: 160/4.5 MCG, 2 PUFFS,TWO TIMES A DAY; STARTING YEARS AGO
     Route: 055
  2. METOPROLOL [Concomitant]
     Active Substance: METOPROLOL
     Dosage: DOSE UNKNOWN
     Route: 065

REACTIONS (6)
  - Inflammation [Unknown]
  - Hypersensitivity [Unknown]
  - Throat tightness [Unknown]
  - Cough [Unknown]
  - Device use issue [Unknown]
  - Device issue [Unknown]
